FAERS Safety Report 9402012 (Version 1)
Quarter: 2013Q3

REPORT INFORMATION
  Report Type: Report from Study
  Country: US (occurrence: US)
  Receive Date: 20130716
  Receipt Date: 20130716
  Transmission Date: 20140515
  Serious: Yes (Other)
  Sender: FDA-Public Use
  Company Number: PHEH2013US013017

PATIENT
  Age: 67 Year
  Sex: Female

DRUGS (6)
  1. TASIGNA [Suspect]
     Indication: NEOPLASM MALIGNANT
     Dosage: 400 MG, BID
     Route: 048
     Dates: start: 20101228
  2. VENLAFAXINE [Concomitant]
     Dosage: 150 MG, DAILY
  3. AMLODIPINE [Concomitant]
     Dosage: 2.5 MG, DAILY
  4. METOPROLOL [Concomitant]
     Dosage: 50 MG, DAILY
  5. TRAZODONE [Concomitant]
     Dosage: 50 MG, DAILY
  6. RISPERIDONE [Concomitant]
     Dosage: 1 MG, BID

REACTIONS (1)
  - Hypertension [Not Recovered/Not Resolved]
